FAERS Safety Report 16629047 (Version 5)
Quarter: 2019Q3

REPORT INFORMATION
  Report Type: Spontaneous
  Country: US (occurrence: US)
  Receive Date: 20190725
  Receipt Date: 20190827
  Transmission Date: 20191004
  Serious: No
  Sender: FDA-Public Use
  Company Number: US-UNITED THERAPEUTICS-UNT-2019-012386

PATIENT
  Sex: Male
  Weight: 52.47 kg

DRUGS (2)
  1. SILDENAFIL CITRATE. [Concomitant]
     Active Substance: SILDENAFIL CITRATE
     Indication: PRODUCT USED FOR UNKNOWN INDICATION
     Dosage: UNK
     Route: 065
  2. TYVASO [Suspect]
     Active Substance: TREPROSTINIL
     Indication: PULMONARY ARTERIAL HYPERTENSION
     Dosage: 18-54 ?G, QID
     Dates: start: 20190708, end: 201907

REACTIONS (13)
  - Dizziness [Unknown]
  - Fatigue [Unknown]
  - Flushing [Unknown]
  - Dyspnoea [Not Recovered/Not Resolved]
  - Oedema peripheral [Unknown]
  - Gastrointestinal pain [Unknown]
  - Vomiting [Unknown]
  - Headache [Unknown]
  - Gastric disorder [Unknown]
  - Pollakiuria [Unknown]
  - Defaecation urgency [Unknown]
  - Productive cough [Unknown]
  - Nausea [Unknown]

NARRATIVE: CASE EVENT DATE: 2019
